FAERS Safety Report 24571172 (Version 1)
Quarter: 2024Q4

REPORT INFORMATION
  Report Type: Spontaneous
  Country: JP (occurrence: JP)
  Receive Date: 20241101
  Receipt Date: 20241101
  Transmission Date: 20250115
  Serious: Yes (Other)
  Sender: MSN LABORATORIES PRIVATE LIMITED
  Company Number: JP-MSNLABS-2024MSNLIT02324

PATIENT

DRUGS (4)
  1. HALOPERIDOL [Suspect]
     Active Substance: HALOPERIDOL
     Indication: Diabetic complication
     Dosage: 20 MG/DAY
     Route: 065
  2. HALOPERIDOL [Suspect]
     Active Substance: HALOPERIDOL
     Indication: Diabetic complication
     Route: 065
  3. INSULIN NOS [Suspect]
     Active Substance: INSULIN NOS
     Indication: Diabetic complication
     Dosage: MULTIPLE DAILY
     Route: 042
  4. INSULIN NOS [Suspect]
     Active Substance: INSULIN NOS
     Indication: Diabetic complication

REACTIONS (2)
  - Drug resistance [Unknown]
  - Drug ineffective [Unknown]
